FAERS Safety Report 16397741 (Version 1)
Quarter: 2019Q2

REPORT INFORMATION
  Report Type: Spontaneous
  Country: RO (occurrence: RO)
  Receive Date: 20190606
  Receipt Date: 20190606
  Transmission Date: 20190711
  Serious: Yes (Other)
  Sender: FDA-Public Use
  Company Number: RO-ROCHE-2327805

PATIENT
  Sex: Female

DRUGS (5)
  1. HERCEPTIN [Suspect]
     Active Substance: TRASTUZUMAB
     Indication: BREAST CANCER
     Dosage: NO?THERAPY START DATE- 17/AUG/2018
     Route: 065
     Dates: start: 20180817, end: 201811
  2. KADCYLA [Suspect]
     Active Substance: ADO-TRASTUZUMAB EMTANSINE
     Indication: BREAST CANCER METASTATIC
     Dosage: YES
     Route: 065
     Dates: start: 20181001
  3. PACLITAXEL. [Concomitant]
     Active Substance: PACLITAXEL
     Indication: BREAST CANCER
     Dosage: NO
     Route: 065
     Dates: start: 20180913, end: 2018
  4. ZOLEDRONIC ACID. [Concomitant]
     Active Substance: ZOLEDRONIC ACID
     Indication: BREAST CANCER METASTATIC
     Route: 065
  5. CARBOPLATIN. [Concomitant]
     Active Substance: CARBOPLATIN
     Indication: BREAST CANCER
     Dosage: NO
     Route: 065
     Dates: start: 20180815, end: 2018

REACTIONS (20)
  - Skin fissures [Unknown]
  - Candida infection [Unknown]
  - Ejection fraction decreased [Unknown]
  - Vertigo [Unknown]
  - Aphthous ulcer [Recovered/Resolved]
  - Bilirubin conjugated increased [Recovered/Resolved]
  - Dyspnoea [Unknown]
  - Thrombocytopenia [Unknown]
  - Haemoglobin decreased [Recovered/Resolved]
  - Neutropenia [Unknown]
  - Blood bilirubin increased [Recovered/Resolved]
  - Weight increased [Recovered/Resolved]
  - Blood alkaline phosphatase increased [Recovered/Resolved]
  - Hypotonia [Unknown]
  - Hiccups [Unknown]
  - Paraesthesia [Unknown]
  - Mucosal inflammation [Unknown]
  - Dehydration [Unknown]
  - Hypothermia [Unknown]
  - Arthralgia [Recovered/Resolved]

NARRATIVE: CASE EVENT DATE: 20180823
